FAERS Safety Report 5620239-7 (Version None)
Quarter: 2008Q1

REPORT INFORMATION
  Report Type: 
  Country: None (occurrence: None)
  Receive Date: 20080208
  Receipt Date: 20080205
  Transmission Date: 20080703
  Serious: Yes (Death, Hospitalization)
  Sender: FDA-Public Use
  Company Number: B0362609A

PATIENT
  Age: 56 Year
  Sex: Female
  Weight: 67.2 kg

DRUGS (2)
  1. GW572016 [Suspect]
     Dosage: 1500MG PER DAY
     Route: 048
     Dates: start: 20041102, end: 20041221
  2. LETROZOLE [Suspect]
     Dosage: 2.5MG PER DAY
     Route: 048
     Dates: start: 20041102

REACTIONS (3)
  - DIARRHOEA [None]
  - GENERAL PHYSICAL HEALTH DETERIORATION [None]
  - VOMITING [None]
